FAERS Safety Report 9553108 (Version 1)
Quarter: 2013Q3

REPORT INFORMATION
  Report Type: Spontaneous
  Country: US (occurrence: None)
  Receive Date: 20130724
  Receipt Date: 20130724
  Transmission Date: 20140515
  Serious: Yes (Other)
  Sender: FDA-Public Use
  Company Number: PHEH2012US019242

PATIENT
  Age: 71 Year
  Sex: Female
  Weight: 51.4 kg

DRUGS (7)
  1. GLEEVEC [Suspect]
     Indication: CHRONIC MYELOID LEUKAEMIA
     Route: 048
     Dates: start: 20120915, end: 20120920
  2. AVALIDE (HYDROCHLOROTHIAZIDE, IRBESARTAN) [Concomitant]
  3. TRILIPIX (CHOLINE FENOFIBRATE) [Concomitant]
  4. IRBESARTAN (IRBESARTAN) [Concomitant]
  5. ASPIRIN (ACETYLSALICYLIC ACID) [Concomitant]
  6. LIPOFLAVONOID (ASCORBIC ACID, BIOFLAVONOIDS, CHOLINE BITARTRATE, DL-METHIONINE, HYDROXOCOBALAMIN, INOSITOL, NICOTINAMIDE, PANTHENOL, PYRIDOXINE, RIBOFLAVIN, THIAMINE) [Concomitant]
  7. PLAVIX (CLOPIDOGREL SULFATE) [Concomitant]

REACTIONS (2)
  - Rash [None]
  - Pruritus [None]
